FAERS Safety Report 14392272 (Version 2)
Quarter: 2018Q2

REPORT INFORMATION
  Report Type: Spontaneous
  Country: VN (occurrence: TH)
  Receive Date: 20180116
  Receipt Date: 20180514
  Transmission Date: 20180711
  Serious: Yes (Other)
  Sender: FDA-Public Use
  Company Number: VN-PFIZER INC-2018016822

PATIENT
  Age: 27 Year
  Sex: Male

DRUGS (1)
  1. VIAGRA [Suspect]
     Active Substance: SILDENAFIL CITRATE
     Dosage: UNK

REACTIONS (5)
  - Intentional overdose [Unknown]
  - Loss of consciousness [Unknown]
  - Aggression [Unknown]
  - Abnormal behaviour [Unknown]
  - Drug ineffective [Unknown]

NARRATIVE: CASE EVENT DATE: 201801
